FAERS Safety Report 6242057-1 (Version None)
Quarter: 2009Q2

REPORT INFORMATION
  Report Type: 
  Country: None (occurrence: None)
  Receive Date: 20090622
  Receipt Date: 20090609
  Transmission Date: 20091009
  Serious: Yes (Hospitalization)
  Sender: FDA-Public Use
  Company Number: 8045326

PATIENT
  Age: 48 Year
  Sex: Female

DRUGS (13)
  1. CERTOLIZUMAB PEGOL [Suspect]
     Indication: CROHN'S DISEASE
     Dosage: 400 MG 1/2W SC
     Route: 058
     Dates: start: 20061123, end: 20061201
  2. CERTOLIZUMAB PEGOL [Suspect]
     Indication: CROHN'S DISEASE
     Dosage: 400 MG SC
     Route: 058
     Dates: start: 20061201, end: 20070531
  3. CERTOLIZUMAB PEGOL [Suspect]
     Indication: CROHN'S DISEASE
     Dosage: 400 MG SC
     Route: 058
     Dates: start: 20070627
  4. CERTOLIZUMAB PEGOL [Suspect]
     Indication: CROHN'S DISEASE
     Dosage: 400 MG SC
     Route: 058
     Dates: start: 20080515
  5. AZATHIOPRINE [Concomitant]
  6. LOPEDIUM [Concomitant]
  7. LORZAAR PLUS [Concomitant]
  8. BISOPROLOL [Concomitant]
  9. ESTRAGEST /00686201/ [Concomitant]
  10. SINUPRET /00578801/ [Concomitant]
  11. VALORON /00205402/ [Concomitant]
  12. CIPROFLOXACIN HCL [Concomitant]
  13. PENTOZOL [Concomitant]

REACTIONS (7)
  - ANAL ABSCESS [None]
  - ANAL STENOSIS [None]
  - BREAST ABSCESS [None]
  - FISTULA [None]
  - MENOPAUSE [None]
  - NASOPHARYNGITIS [None]
  - PAIN [None]
